FAERS Safety Report 8094220-5 (Version None)
Quarter: 2012Q1

REPORT INFORMATION
  Report Type: 
  Country: None (occurrence: None)
  Receive Date: 20120131
  Receipt Date: 20120124
  Transmission Date: 20120608
  Serious: Yes (Other)
  Sender: FDA-Public Use
  Company Number: BR-JNJFOC-20120112250

PATIENT
  Age: 83 Year
  Sex: Female
  Weight: 50 kg

DRUGS (6)
  1. MEGESTAT [Concomitant]
     Route: 065
     Dates: start: 20110901
  2. OMEPRAZOLE [Concomitant]
     Indication: GASTRIC DISORDER
     Route: 065
     Dates: start: 20110901
  3. ULTRACET [Suspect]
     Indication: ANALGESIC THERAPY
     Dosage: 4 DOSES IN A DAY
     Route: 048
     Dates: start: 20110901
  4. CELEBREX [Concomitant]
     Indication: ANTIINFLAMMATORY THERAPY
     Route: 065
     Dates: start: 20110901
  5. LASIX [Concomitant]
     Indication: DIURETIC THERAPY
     Route: 065
     Dates: start: 20111201
  6. ALDACTONE [Concomitant]
     Indication: ANTIINFLAMMATORY THERAPY
     Route: 065
     Dates: start: 20111201

REACTIONS (2)
  - DRUG INEFFECTIVE [None]
  - PRODUCT COUNTERFEIT [None]
